FAERS Safety Report 13517972 (Version 2)
Quarter: 2017Q3

REPORT INFORMATION
  Report Type: Spontaneous
  Country: US (occurrence: US)
  Receive Date: 20170505
  Receipt Date: 20170706
  Transmission Date: 20171127
  Serious: No
  Sender: FDA-Public Use
  Company Number: US-GLAXOSMITHKLINE-US2017061890

PATIENT
  Age: 69 Year
  Sex: Female

DRUGS (1)
  1. PREVACID 24 HR [Suspect]
     Active Substance: LANSOPRAZOLE
     Indication: GASTROOESOPHAGEAL REFLUX DISEASE
     Dosage: UNK
     Dates: start: 201704

REACTIONS (5)
  - Nightmare [Unknown]
  - Blood glucose abnormal [Unknown]
  - Oropharyngeal pain [Recovered/Resolved with Sequelae]
  - Abdominal distension [Recovered/Resolved with Sequelae]
  - Adverse drug reaction [Unknown]
